FAERS Safety Report 4658866-6 (Version None)
Quarter: 2005Q2

REPORT INFORMATION
  Report Type: 
  Country: None (occurrence: None)
  Receive Date: 20050509
  Receipt Date: 20050429
  Transmission Date: 20051028
  Serious: Yes (Hospitalization)
  Sender: FDA-Public Use
  Company Number: 2005-04-2200

PATIENT
  Age: 43 Year
  Sex: Male
  Weight: 60 kg

DRUGS (5)
  1. REBETOL [Suspect]
     Indication: HEPATITIS C
     Dosage: 800 MG QD ORAL
     Route: 048
     Dates: start: 20050114, end: 20050131
  2. PEGASYS [Suspect]
     Indication: HEPATITIS C
     Dosage: 180 MCG QW SUBCUTANEOUS
     Route: 058
     Dates: start: 20050114, end: 20050128
  3. SPIRONOLACTONE [Concomitant]
  4. LORAZEPAM [Concomitant]
  5. PANTOPRAZOL [Concomitant]

REACTIONS (3)
  - ACUTE PSYCHOSIS [None]
  - AGGRESSION [None]
  - DELUSION [None]
